FAERS Safety Report 21120137 (Version 1)
Quarter: 2022Q3

REPORT INFORMATION
  Report Type: Spontaneous
  Country: RU (occurrence: RU)
  Receive Date: 20220722
  Receipt Date: 20220722
  Transmission Date: 20221027
  Serious: Yes (Other)
  Sender: FDA-Public Use
  Company Number: RU-BAYER-2022P007616

PATIENT
  Age: 50 Year
  Sex: Male

DRUGS (1)
  1. SORAFENIB [Suspect]
     Active Substance: SORAFENIB
     Indication: Hepatocellular carcinoma
     Dosage: UNK
     Dates: start: 201607, end: 201710

REACTIONS (3)
  - Metastases to adrenals [None]
  - Hepatocellular carcinoma [None]
  - Metastases to lymph nodes [None]

NARRATIVE: CASE EVENT DATE: 20170101
